FAERS Safety Report 20136278 (Version 1)
Quarter: 2021Q4

REPORT INFORMATION
  Report Type: Spontaneous
  Country: US (occurrence: None)
  Receive Date: 20211201
  Receipt Date: 20211201
  Transmission Date: 20220303
  Serious: Yes (Other)
  Sender: FDA-Public Use
  Company Number: None

PATIENT
  Age: 40 Year
  Sex: Male
  Weight: 106.14 kg

DRUGS (1)
  1. AMPHETAMINE SULFATE\DEXTROAMPHETAMINE [Suspect]
     Active Substance: AMPHETAMINE SULFATE\DEXTROAMPHETAMINE
     Indication: Attention deficit hyperactivity disorder
     Dosage: FREQUENCY : DAILY;?
     Route: 048
     Dates: start: 202109, end: 202111

REACTIONS (11)
  - Palpitations [None]
  - Feeling jittery [None]
  - Headache [None]
  - Sluggishness [None]
  - Fatigue [None]
  - Apathy [None]
  - Depression [None]
  - Suicidal ideation [None]
  - Product substitution issue [None]
  - Anxiety [None]
  - Job dissatisfaction [None]

NARRATIVE: CASE EVENT DATE: 20210101
